FAERS Safety Report 21619319 (Version 1)
Quarter: 2022Q4

REPORT INFORMATION
  Report Type: Spontaneous
  Country: AU (occurrence: AU)
  Receive Date: 20221120
  Receipt Date: 20221120
  Transmission Date: 20230113
  Serious: Yes (Other)
  Sender: FDA-Public Use
  Company Number: AU-BAUSCH-BL-2022-014325

PATIENT
  Sex: Female

DRUGS (8)
  1. PREDNISOLONE [Suspect]
     Active Substance: PREDNISOLONE
     Indication: Splenic marginal zone lymphoma
     Dosage: 6 YEARS AGO, 6 CYCLES
     Route: 065
     Dates: start: 2016
  2. DOXORUBICIN HYDROCHLORIDE [Suspect]
     Active Substance: DOXORUBICIN HYDROCHLORIDE
     Indication: Splenic marginal zone lymphoma
     Dosage: 6 YEARS AGO, 6 CYCLES
     Route: 065
     Dates: start: 2016
  3. CYCLOPHOSPHAMIDE [Suspect]
     Active Substance: CYCLOPHOSPHAMIDE
     Indication: Splenic marginal zone lymphoma
     Dosage: 6 YEARS AGO, 6 CYCLES
     Route: 065
     Dates: start: 2016
  4. VINCRISTINE SULFATE [Suspect]
     Active Substance: VINCRISTINE SULFATE
     Indication: Splenic marginal zone lymphoma
     Dosage: 6 YEARS AGO, 6 CYCLES
     Route: 065
     Dates: start: 2016
  5. BENDAMUSTINE [Suspect]
     Active Substance: BENDAMUSTINE
     Indication: Splenic marginal zone lymphoma
     Dosage: 4 CYCLES
     Route: 065
     Dates: start: 2021
  6. RITUXIMAB [Suspect]
     Active Substance: RITUXIMAB
     Indication: Product used for unknown indication
     Dosage: GP2013?6 YEARS AGO, 6 CYCLES
     Route: 065
     Dates: start: 2016
  7. RITUXIMAB [Suspect]
     Active Substance: RITUXIMAB
     Dosage: 4 CYCLES
     Route: 065
     Dates: start: 2021
  8. CYTARABINE [Suspect]
     Active Substance: CYTARABINE
     Indication: Splenic marginal zone lymphoma
     Dosage: 4 CYCLES
     Route: 065
     Dates: start: 2021

REACTIONS (5)
  - Bronchiectasis [Unknown]
  - Metastases to bone marrow [Unknown]
  - Metastases to lung [Unknown]
  - Plasma cell myeloma refractory [Unknown]
  - Pulmonary function test decreased [Unknown]
